FAERS Safety Report 21847597 (Version 3)
Quarter: 2023Q1

REPORT INFORMATION
  Report Type: Spontaneous
  Country: US (occurrence: US)
  Receive Date: 20230111
  Receipt Date: 20230307
  Transmission Date: 20230418
  Serious: Yes (Hospitalization)
  Sender: FDA-Public Use
  Company Number: US-AUROBINDO-AUR-APL-2023-000874

PATIENT
  Age: 80 Year
  Sex: Male
  Weight: 72 kg

DRUGS (2)
  1. RASAGILINE [Suspect]
     Active Substance: RASAGILINE
     Indication: Parkinson^s disease
     Dosage: 1 MILLIGRAM, DAILY
     Route: 048
     Dates: start: 2020
  2. ENZALUTAMIDE [Suspect]
     Active Substance: ENZALUTAMIDE
     Indication: Prostate cancer
     Dosage: 160 MILLIGRAM, DAILY
     Route: 048
     Dates: start: 20220923, end: 20221102

REACTIONS (1)
  - Mental status changes [Recovered/Resolved]

NARRATIVE: CASE EVENT DATE: 20221031
